FAERS Safety Report 6432059-4 (Version None)
Quarter: 2009Q4

REPORT INFORMATION
  Report Type: 
  Country: None (occurrence: None)
  Receive Date: 20091109
  Receipt Date: 20091028
  Transmission Date: 20100525
  Serious: Yes (Hospitalization, Disabling, Other)
  Sender: FDA-Public Use
  Company Number: US-ROCHE-409415

PATIENT
  Sex: Male
  Weight: 73.5 kg

DRUGS (1)
  1. ACCUTANE [Suspect]
     Route: 048
     Dates: start: 19890223, end: 19890601

REACTIONS (20)
  - ABDOMINAL ABSCESS [None]
  - ARTHRITIS [None]
  - BLOOD DISORDER [None]
  - COLITIS [None]
  - CROHN'S DISEASE [None]
  - DEPRESSION [None]
  - DRY SKIN [None]
  - GASTROINTESTINAL ANASTOMOTIC LEAK [None]
  - GASTROINTESTINAL DISORDER [None]
  - HERNIA [None]
  - HYPOTHYROIDISM [None]
  - INFLAMMATORY BOWEL DISEASE [None]
  - INTESTINAL HAEMORRHAGE [None]
  - INTESTINAL OBSTRUCTION [None]
  - MULTI-ORGAN DISORDER [None]
  - NEPHROLITHIASIS [None]
  - PERNICIOUS ANAEMIA [None]
  - POLYARTHRITIS [None]
  - RECTAL HAEMORRHAGE [None]
  - SPONDYLOARTHROPATHY [None]
